FAERS Safety Report 4493846-5 (Version None)
Quarter: 2004Q4

REPORT INFORMATION
  Report Type: 
  Country: None (occurrence: None)
  Receive Date: 20041103
  Receipt Date: 20041103
  Transmission Date: 20050328
  Serious: No
  Sender: FDA-Public Use
  Company Number: None

PATIENT
  Sex: Female

DRUGS (1)
  1. OVIDE [Suspect]

REACTIONS (5)
  - ALOPECIA [None]
  - APPLICATION SITE REACTION [None]
  - CAUSTIC INJURY [None]
  - PHARMACEUTICAL PRODUCT COMPLAINT [None]
  - SWELLING [None]
